FAERS Safety Report 8365022-7 (Version None)
Quarter: 2012Q2

REPORT INFORMATION
  Report Type: 
  Country: None (occurrence: None)
  Receive Date: 20120516
  Receipt Date: 20120510
  Transmission Date: 20120825
  Serious: Yes (Disabling)
  Sender: FDA-Public Use
  Company Number: JP-GLAXOSMITHKLINE-B0762190A

PATIENT
  Sex: Male
  Weight: 60 kg

DRUGS (19)
  1. PROMACTA [Suspect]
     Dosage: 25MG PER DAY
     Route: 048
     Dates: start: 20110425, end: 20110529
  2. PREDNISOLONE [Suspect]
     Dosage: 5MG PER DAY
     Route: 048
     Dates: start: 20110111
  3. GASCON [Concomitant]
     Dosage: 120MG PER DAY
     Route: 048
     Dates: end: 20110220
  4. PREDNISOLONE [Suspect]
     Dosage: 10MG PER DAY
     Route: 048
     Dates: start: 20101227, end: 20110110
  5. PROTECADIN [Concomitant]
     Dosage: 10MG PER DAY
     Route: 048
  6. FERROUS CITRATE [Concomitant]
     Dosage: 100MG PER DAY
     Route: 048
     Dates: start: 20110801, end: 20120401
  7. IMURAN [Suspect]
     Indication: IDIOPATHIC THROMBOCYTOPENIC PURPURA
     Dosage: 50MG PER DAY
     Route: 048
     Dates: end: 20110123
  8. PROMACTA [Suspect]
     Dosage: 6.25MG PER DAY
     Route: 048
     Dates: start: 20110124, end: 20110206
  9. PROMACTA [Suspect]
     Dosage: 12.5MG PER DAY
     Route: 048
     Dates: start: 20110530, end: 20120415
  10. GASMOTIN [Concomitant]
     Dosage: 15MG PER DAY
     Route: 048
     Dates: end: 20110220
  11. FLUCONAZOLE [Concomitant]
     Dosage: 100MG PER DAY
     Route: 048
     Dates: end: 20110515
  12. PROMACTA [Suspect]
     Indication: IDIOPATHIC THROMBOCYTOPENIC PURPURA
     Dosage: 12.5MG PER DAY
     Route: 048
     Dates: start: 20101220, end: 20110123
  13. PREDNISOLONE [Suspect]
     Indication: IDIOPATHIC THROMBOCYTOPENIC PURPURA
     Dosage: 15MG PER DAY
     Route: 048
     Dates: end: 20101226
  14. COTRIM [Concomitant]
     Dosage: 1IUAX PER DAY
     Route: 048
     Dates: start: 20101220, end: 20110515
  15. CANDESARTAN CILEXETIL [Concomitant]
     Dosage: 4MG PER DAY
     Route: 048
  16. ALDACTONE [Concomitant]
     Dosage: 25MG PER DAY
     Route: 048
     Dates: end: 20110501
  17. PROMACTA [Suspect]
     Dosage: 12.5MG PER DAY
     Route: 048
     Dates: start: 20110207, end: 20110424
  18. SLOW-K [Concomitant]
     Dosage: 1200MG PER DAY
     Route: 048
     Dates: start: 20110801
  19. POTASSIUM GLUCONATE TAB [Concomitant]
     Dosage: 15MG PER DAY
     Route: 048

REACTIONS (4)
  - WHITE BLOOD CELL COUNT INCREASED [None]
  - BLOOD LACTATE DEHYDROGENASE INCREASED [None]
  - LIVER DISORDER [None]
  - BLOOD BILIRUBIN INCREASED [None]
